FAERS Safety Report 18672887 (Version 5)
Quarter: 2021Q3

REPORT INFORMATION
  Report Type: Spontaneous
  Country: JP (occurrence: JP)
  Receive Date: 20201228
  Receipt Date: 20210803
  Transmission Date: 20211014
  Serious: Yes (Hospitalization, Other)
  Sender: FDA-Public Use
  Company Number: JP-LUNDBECK-DKLU3005541

PATIENT
  Age: 3 Year
  Sex: Female
  Weight: 16.1 kg

DRUGS (31)
  1. VIGABATRIN (FOR ORAL SOLUTION) [Suspect]
     Active Substance: VIGABATRIN
     Dosage: 400 MG, BID
     Route: 048
     Dates: start: 20190507, end: 20190520
  2. VIGABATRIN (FOR ORAL SOLUTION) [Suspect]
     Active Substance: VIGABATRIN
     Dosage: 600 MG, BID
     Route: 048
     Dates: start: 20191204, end: 20191210
  3. VIGABATRIN (FOR ORAL SOLUTION) [Suspect]
     Active Substance: VIGABATRIN
     Dosage: DAILY DOSAGE 800MG, BID
     Route: 048
     Dates: start: 20201209, end: 20201213
  4. VIGABATRIN (FOR ORAL SOLUTION) [Suspect]
     Active Substance: VIGABATRIN
     Dosage: DAILY DOSAGE 600MG, BID
     Route: 048
     Dates: start: 20201214, end: 20201218
  5. VIGABATRIN (FOR ORAL SOLUTION) [Suspect]
     Active Substance: VIGABATRIN
     Dosage: DAILY DOSAGE 400MG, BID
     Route: 048
     Dates: start: 20201219, end: 202106
  6. TOPINA [Concomitant]
     Active Substance: TOPIRAMATE
     Indication: INFANTILE SPASMS
     Dosage: 130 MG, QD
     Route: 048
     Dates: start: 20181210, end: 20200914
  7. LAMOTRIGINE. [Concomitant]
     Active Substance: LAMOTRIGINE
     Indication: INFANTILE SPASMS
     Dosage: 80 MG, QD
     Route: 048
     Dates: start: 20180730, end: 20201006
  8. VIGABATRIN (FOR ORAL SOLUTION) [Suspect]
     Active Substance: VIGABATRIN
     Dosage: 250 MG, BID
     Route: 048
     Dates: start: 20190318, end: 20190401
  9. VIGABATRIN (FOR ORAL SOLUTION) [Suspect]
     Active Substance: VIGABATRIN
     Dosage: 375 MG, BID
     Route: 048
     Dates: start: 20190423, end: 20190506
  10. VIGABATRIN (FOR ORAL SOLUTION) [Suspect]
     Active Substance: VIGABATRIN
     Dosage: 700 MG, BID
     Route: 048
     Dates: start: 20190709, end: 20190812
  11. VALERIN MAX [Concomitant]
     Dosage: DAILY DOSE: 500 MG
     Route: 048
     Dates: start: 20201208
  12. TOPINA [Concomitant]
     Active Substance: TOPIRAMATE
     Dosage: DAILY DOSE: 170 MG
     Route: 048
     Dates: start: 20200915
  13. INCREMIN [FERRIC PYROPHOSPHATE] [Concomitant]
     Active Substance: FERRIC PYROPHOSPHATE
     Indication: IRON DEFICIENCY ANAEMIA
     Dosage: 2 ML, QD
     Route: 048
     Dates: start: 20191217
  14. LAMOTRIGINE. [Concomitant]
     Active Substance: LAMOTRIGINE
     Dosage: DAILY DOSE: 90 MG
     Route: 048
     Dates: start: 20201006, end: 20201109
  15. VIGABATRIN (FOR ORAL SOLUTION) [Suspect]
     Active Substance: VIGABATRIN
     Dosage: 750 MG, BID
     Route: 048
     Dates: start: 20190813, end: 20191203
  16. VIGABATRIN (FOR ORAL SOLUTION) [Suspect]
     Active Substance: VIGABATRIN
     Dosage: 300 MG, BID
     Route: 048
     Dates: start: 20190416, end: 20190422
  17. VIGABATRIN (FOR ORAL SOLUTION) [Suspect]
     Active Substance: VIGABATRIN
     Dosage: 500 MG, BID
     Route: 048
     Dates: start: 20190610, end: 20190624
  18. VIGABATRIN (FOR ORAL SOLUTION) [Suspect]
     Active Substance: VIGABATRIN
     Dosage: DAILY DOSAGE 1000MG, BID
     Route: 048
     Dates: start: 20200901, end: 20201208
  19. VALERIN MAX [Concomitant]
     Dosage: DAILY DOSE: 200 MG
     Route: 048
     Dates: end: 20200831
  20. VIGABATRIN (FOR ORAL SOLUTION) [Suspect]
     Active Substance: VIGABATRIN
     Dosage: 450 MG, BID
     Route: 048
     Dates: start: 20190521, end: 20190609
  21. VIGABATRIN (FOR ORAL SOLUTION) [Suspect]
     Active Substance: VIGABATRIN
     Dosage: 575 MG, BID
     Route: 048
     Dates: start: 20190625, end: 20190708
  22. VIGABATRIN (FOR ORAL SOLUTION) [Suspect]
     Active Substance: VIGABATRIN
     Dosage: TAPERED AND DISCONTINUED
     Route: 048
     Dates: start: 202106, end: 20210630
  23. VALERIN MAX [Concomitant]
     Indication: INFANTILE SPASMS
     Dosage: 4 ML, QD
     Route: 048
     Dates: start: 20170502
  24. VALERIN MAX [Concomitant]
     Dosage: DAILY DOSE: 400 MG
     Route: 065
     Dates: start: 20201006, end: 20201207
  25. VIGABATRIN (FOR ORAL SOLUTION) [Suspect]
     Active Substance: VIGABATRIN
     Dosage: 375 MG, BID
     Route: 048
     Dates: start: 20190402, end: 20190415
  26. LAMOTRIGINE. [Concomitant]
     Active Substance: LAMOTRIGINE
     Dosage: DAILY DOSE: 100 MG
     Route: 048
     Dates: start: 20201110
  27. VIGABATRIN (FOR ORAL SOLUTION) [Suspect]
     Active Substance: VIGABATRIN
     Indication: INFANTILE SPASMS
     Dosage: 600 MG, BID
     Route: 048
     Dates: start: 20191217, end: 20200831
  28. VIGABATRIN (FOR ORAL SOLUTION) [Suspect]
     Active Substance: VIGABATRIN
     Dosage: 125 MG, BID
     Route: 048
     Dates: start: 20190304, end: 20190317
  29. VIGABATRIN (FOR ORAL SOLUTION) [Suspect]
     Active Substance: VIGABATRIN
     Dosage: 400 MG, BID
     Route: 048
     Dates: start: 20191211, end: 20191216
  30. EVEROLIMUS. [Suspect]
     Active Substance: EVEROLIMUS
     Indication: PRODUCT USED FOR UNKNOWN INDICATION
     Dosage: DAILY DOSE: 25 MG
     Route: 048
     Dates: end: 20210215
  31. VALERIN MAX [Concomitant]
     Dosage: DAILY DOSE: 300 MG
     Route: 048
     Dates: start: 20200901, end: 20201005

REACTIONS (11)
  - Retinal disorder [Not Recovered/Not Resolved]
  - Retinal disorder [Not Recovered/Not Resolved]
  - Retinogram abnormal [Not Recovered/Not Resolved]
  - Astigmatism [Not Recovered/Not Resolved]
  - Retinal disorder [Not Recovered/Not Resolved]
  - Pyrexia [Recovered/Resolved]
  - Wheezing [Recovered/Resolved]
  - Retinogram abnormal [Recovered/Resolved]
  - Retinogram abnormal [Not Recovered/Not Resolved]
  - Retinal disorder [Not Recovered/Not Resolved]
  - Drug ineffective [Unknown]

NARRATIVE: CASE EVENT DATE: 20190917
